FAERS Safety Report 10762936 (Version 1)
Quarter: 2015Q1

REPORT INFORMATION
  Report Type: Spontaneous
  Country: US (occurrence: US)
  Receive Date: 20150204
  Receipt Date: 20150204
  Transmission Date: 20150721
  Serious: Yes (Death)
  Sender: FDA-Public Use
  Company Number: US-PERRIGO-15US001023

PATIENT
  Age: 49 Year
  Sex: Female

DRUGS (6)
  1. FENTANYL. [Suspect]
     Active Substance: FENTANYL
     Indication: ADVERSE DRUG REACTION
     Dosage: UNKNOWN, UNKNOWN
     Route: 051
  2. CURARE ALKALOIDS [Suspect]
     Active Substance: CURARE
     Indication: ADVERSE DRUG REACTION
     Dosage: UNKNOWN, UNKNOWN
     Route: 051
  3. NICARDIPINE [Suspect]
     Active Substance: NICARDIPINE
     Indication: ADVERSE DRUG REACTION
     Dosage: UNKNOWN, UNKNOWN
     Route: 051
  4. MIDAZOLAM HCL [Suspect]
     Active Substance: MIDAZOLAM HYDROCHLORIDE
     Indication: ADVERSE DRUG REACTION
     Dosage: UNKNOWN, UNKNOWN
     Route: 051
  5. PROPOFOL. [Suspect]
     Active Substance: PROPOFOL
     Indication: ADVERSE DRUG REACTION
     Dosage: UNKNOWN, UNKNOWN
     Route: 051
  6. DESMOPRESSIN [Suspect]
     Active Substance: DESMOPRESSIN
     Indication: ADVERSE DRUG REACTION
     Dosage: UNKNOWN, UNKNOWN
     Route: 051

REACTIONS (1)
  - Death [Fatal]
